FAERS Safety Report 4937007-1 (Version None)
Quarter: 2006Q1

REPORT INFORMATION
  Report Type: 
  Country: None (occurrence: None)
  Receive Date: 20060309
  Receipt Date: 20060301
  Transmission Date: 20060701
  Serious: Yes (Death, Hospitalization)
  Sender: FDA-Public Use
  Company Number: GB-SANOFI-SYNTHELABO-A01200601663

PATIENT
  Age: 67 Year
  Sex: Male

DRUGS (2)
  1. OXALIPLATIN [Suspect]
     Indication: ADENOCARCINOMA
     Route: 042
  2. CAPECITABINE [Suspect]
     Indication: ADENOCARCINOMA

REACTIONS (10)
  - ENTERITIS [None]
  - GASTRIC ULCER [None]
  - LARYNGOSPASM [None]
  - NAUSEA [None]
  - ODYNOPHAGIA [None]
  - OESOPHAGEAL CANDIDIASIS [None]
  - PAIN [None]
  - SEPSIS [None]
  - URINARY TRACT INFECTION [None]
  - WEIGHT DECREASED [None]
